FAERS Safety Report 18317168 (Version 1)
Quarter: 2020Q3

REPORT INFORMATION
  Report Type: Other
  Country: CA (occurrence: CA)
  Receive Date: 20200928
  Receipt Date: 20200928
  Transmission Date: 20201103
  Serious: Yes (Hospitalization)
  Sender: FDA-Public Use
  Company Number: CA-CELLTRION INC.-2020CA027107

PATIENT

DRUGS (21)
  1. METOPROLOL. [Concomitant]
     Active Substance: METOPROLOL
  2. PREDNISONE. [Concomitant]
     Active Substance: PREDNISONE
  3. VALTREX [Concomitant]
     Active Substance: VALACYCLOVIR HYDROCHLORIDE
  4. VITAMIN D [VITAMIN D NOS] [Concomitant]
     Active Substance: VITAMIN D NOS
  5. CLINDAMYCIN. [Concomitant]
     Active Substance: CLINDAMYCIN
  6. HCTZ [Concomitant]
     Active Substance: HYDROCHLOROTHIAZIDE
  7. PREDNISOLONE. [Concomitant]
     Active Substance: PREDNISOLONE
     Dosage: UNK, 2 EVERY 1 DAYS
     Route: 065
  8. AMLODIPINE [Concomitant]
     Active Substance: AMLODIPINE BESYLATE
  9. VALSARTAN. [Concomitant]
     Active Substance: VALSARTAN
  10. WARFARIN [Concomitant]
     Active Substance: WARFARIN
  11. ACETAMINOPHEN. [Concomitant]
     Active Substance: ACETAMINOPHEN
     Dosage: 650.0 MILLIGRAM
     Route: 048
  12. CALCIUM [Concomitant]
     Active Substance: CALCIUM
  13. FOLIC ACID. [Concomitant]
     Active Substance: FOLIC ACID
  14. METHYLPREDNISOLONE. [Concomitant]
     Active Substance: METHYLPREDNISOLONE
     Dosage: 100.0 MILLIGRAM
     Route: 042
  15. AZATHIOPRINE. [Concomitant]
     Active Substance: AZATHIOPRINE
  16. SYNTHROID [Concomitant]
     Active Substance: LEVOTHYROXINE SODIUM
  17. RITUXIMAB (UNKNOWN) [Suspect]
     Active Substance: RITUXIMAB
     Indication: RHEUMATOID ARTHRITIS
     Dosage: 1000.0 MILLIGRAM
     Route: 042
  18. ASA [Concomitant]
     Active Substance: ASPIRIN
     Dosage: 81.0 MILLIGRAM
     Route: 065
  19. DIPHENHYDRAMINE. [Concomitant]
     Active Substance: DIPHENHYDRAMINE
     Dosage: 50.0 MILLIGRAM
     Route: 048
  20. TYLENOL [Concomitant]
     Active Substance: ACETAMINOPHEN
  21. VITAMIN C [Concomitant]
     Active Substance: ASCORBIC ACID

REACTIONS (4)
  - Eye discharge [Unknown]
  - Pulmonary embolism [Unknown]
  - Cough [Unknown]
  - Nasopharyngitis [Unknown]
